FAERS Safety Report 24176110 (Version 1)
Quarter: 2024Q3

REPORT INFORMATION
  Report Type: Report from Study
  Country: US (occurrence: None)
  Receive Date: 20240806
  Receipt Date: 20240806
  Transmission Date: 20241016
  Serious: Yes (Other)
  Sender: ASTRAZENECA
  Company Number: 2022A237244

PATIENT

DRUGS (1)
  1. CALQUENCE [Suspect]
     Active Substance: ACALABRUTINIB
     Route: 048

REACTIONS (6)
  - Toxicity to various agents [Unknown]
  - Disease progression [Unknown]
  - Infection [Unknown]
  - Anaemia [Unknown]
  - Atrial fibrillation [Unknown]
  - Drug ineffective [Unknown]
